FAERS Safety Report 8917777 (Version 1)
Quarter: 2012Q4

REPORT INFORMATION
  Report Type: 
  Country: ES (occurrence: ES)
  Receive Date: 20121120
  Receipt Date: 20121120
  Transmission Date: 20130627
  Serious: Yes (Hospitalization)
  Sender: FDA-Public Use
  Company Number: ES-US-EMD SERONO, INC.-E2B_7174592

PATIENT
  Age: 39 Year
  Sex: Female

DRUGS (6)
  1. OVITRELLE [Suspect]
     Indication: INFERTILITY
     Dosage: EN PLUMA PRECARGADA , 1
     Route: 058
     Dates: start: 20110420, end: 20110420
  2. ORGALUTRAN [Suspect]
     Indication: INFERTILITY
     Dosage: 0.25MG/JER 1 JERINGA PRECARG 0.5ML INY
     Route: 058
     Dates: start: 20110420, end: 20110420
  3. UTROGESTAN [Suspect]
     Indication: PROPHYLAXIS
     Dosage: 15 CAPSULAS
     Route: 048
     Dates: start: 20110421, end: 201109
  4. PROGYNOVA [Suspect]
     Indication: PRODUCT USED FOR UNKNOWN INDICATION
     Dosage: 1 MG COMPRIMIDOS RECUBIERTOS , 20 COMPRIMIDOS
     Route: 048
     Dates: start: 20110705, end: 201109
  5. FEMASVIT [Suspect]
     Indication: PRODUCT USED FOR UNKNOWN INDICATION
     Dosage: 90 Capsules (DIETET)
     Route: 048
     Dates: start: 20110705
  6. NATALBEN SUPRA [Suspect]
     Indication: PRODUCT USED FOR UNKNOWN INDICATION
     Dosage: 30 Capsules (DIET)
     Route: 048
     Dates: start: 20110705, end: 20120213

REACTIONS (1)
  - Cholestasis of pregnancy [Recovered/Resolved]
